FAERS Safety Report 8484689-6 (Version None)
Quarter: 2012Q3

REPORT INFORMATION
  Report Type: 
  Country: None (occurrence: None)
  Receive Date: 20120703
  Receipt Date: 20120525
  Transmission Date: 20120928
  Serious: No
  Sender: FDA-Public Use
  Company Number: US-TEVA-336347USA

PATIENT
  Age: 35 Year
  Sex: Male

DRUGS (3)
  1. NUVIGIL [Suspect]
     Indication: SLEEP APNOEA SYNDROME
     Route: 048
  2. ATENOLOL [Concomitant]
  3. VALACYCLOVIR HYDROCHLORIDE [Concomitant]

REACTIONS (2)
  - PAIN IN JAW [None]
  - DRUG INEFFECTIVE [None]
